FAERS Safety Report 5317131-4 (Version None)
Quarter: 2007Q2

REPORT INFORMATION
  Report Type: 
  Country: None (occurrence: None)
  Receive Date: 20070504
  Receipt Date: 20070425
  Transmission Date: 20071010
  Serious: Yes (Hospitalization)
  Sender: FDA-Public Use
  Company Number: US-AMGEN-KDL217264

PATIENT
  Age: 23 Year
  Sex: Male
  Weight: 56.3 kg

DRUGS (1)
  1. ENBREL [Suspect]
     Indication: ANKYLOSING SPONDYLITIS
     Route: 058
     Dates: start: 20010401, end: 20070301

REACTIONS (1)
  - COLITIS ULCERATIVE [None]
